FAERS Safety Report 24904240 (Version 1)
Quarter: 2025Q1

REPORT INFORMATION
  Report Type: Spontaneous
  Country: FR (occurrence: FR)
  Receive Date: 20250130
  Receipt Date: 20250130
  Transmission Date: 20250408
  Serious: Yes (Other)
  Sender: HIKMA
  Company Number: FR-HIKMA PHARMACEUTICALS-FR-H14001-25-00655

PATIENT
  Age: 51 Year
  Sex: Female

DRUGS (6)
  1. CASPOFUNGIN [Suspect]
     Active Substance: CASPOFUNGIN
     Indication: Fungaemia
     Route: 065
     Dates: end: 2021
  2. CASPOFUNGIN [Suspect]
     Active Substance: CASPOFUNGIN
     Route: 065
     Dates: start: 2021, end: 202112
  3. CASPOFUNGIN [Suspect]
     Active Substance: CASPOFUNGIN
     Route: 065
     Dates: start: 202301
  4. VORICONAZOLE [Suspect]
     Active Substance: VORICONAZOLE
     Route: 065
     Dates: start: 202110, end: 202110
  5. VORICONAZOLE [Suspect]
     Active Substance: VORICONAZOLE
     Indication: Fungal infection
     Route: 065
     Dates: start: 202110, end: 202110
  6. VORICONAZOLE [Suspect]
     Active Substance: VORICONAZOLE
     Route: 065
     Dates: start: 2023

REACTIONS (3)
  - Pathogen resistance [Unknown]
  - Overdose [Unknown]
  - Off label use [Unknown]
